FAERS Safety Report 6644509-9 (Version None)
Quarter: 2010Q1

REPORT INFORMATION
  Report Type: 
  Country: None (occurrence: None)
  Receive Date: 20100319
  Receipt Date: 20100319
  Transmission Date: 20100710
  Serious: Yes (Other)
  Sender: FDA-Public Use
  Company Number: None

PATIENT
  Age: 69 Year
  Sex: Male
  Weight: 107.5025 kg

DRUGS (1)
  1. SIMVASTATIN [Suspect]
     Indication: BLOOD CHOLESTEROL
     Dosage: 40MG 1/DAY-EVE. LINGUAL
     Dates: start: 20030101

REACTIONS (13)
  - ABDOMINAL PAIN LOWER [None]
  - AMNESIA [None]
  - ASTHENIA [None]
  - DIZZINESS [None]
  - DRY SKIN [None]
  - DYSPHAGIA [None]
  - FATIGUE [None]
  - LISTLESS [None]
  - NEUROPATHY PERIPHERAL [None]
  - PAIN [None]
  - PAIN IN EXTREMITY [None]
  - PRURITUS [None]
  - RASH [None]
